FAERS Safety Report 9130933 (Version 1)
Quarter: 2013Q1

REPORT INFORMATION
  Report Type: Spontaneous
  Country: IT (occurrence: IT)
  Receive Date: 20130301
  Receipt Date: 20130301
  Transmission Date: 20140127
  Serious: Yes (Hospitalization)
  Sender: FDA-Public Use
  Company Number: IT-PFIZER INC-2013072895

PATIENT
  Age: 52 Year
  Sex: Female

DRUGS (1)
  1. CARBOPLATINO [Suspect]
     Indication: BREAST CANCER METASTATIC
     Dosage: 400 MG TOTAL
     Route: 042
     Dates: start: 20130215, end: 20130215

REACTIONS (3)
  - Chest discomfort [Recovered/Resolved]
  - Hypotension [Recovered/Resolved]
  - Pulse pressure decreased [Recovered/Resolved]
